FAERS Safety Report 20140808 (Version 1)
Quarter: 2021Q4

REPORT INFORMATION
  Report Type: Spontaneous
  Country: BR (occurrence: BR)
  Receive Date: 20211202
  Receipt Date: 20211202
  Transmission Date: 20220303
  Serious: Yes (Other)
  Sender: FDA-Public Use
  Company Number: BR-NOVARTISPH-NVSC2020BR319829

PATIENT
  Age: 76 Year
  Weight: 67 kg

DRUGS (6)
  1. TIMOLOL MALEATE\TRAVOPROST [Suspect]
     Active Substance: TIMOLOL MALEATE\TRAVOPROST
     Indication: Open angle glaucoma
     Dosage: 1 DRP, QD (01 DROP IN THE LEFT EYES/PER NIGHT)
     Route: 047
     Dates: end: 2020
  2. TIMOLOL MALEATE\TRAVOPROST [Suspect]
     Active Substance: TIMOLOL MALEATE\TRAVOPROST
     Dosage: 1 DRP, QD ( (01 DROP IN THE LEFT EYES/PER NIGHT)
     Route: 047
     Dates: start: 202012
  3. COMBIGAN [Concomitant]
     Active Substance: BRIMONIDINE TARTRATE\TIMOLOL MALEATE
     Indication: Open angle glaucoma
     Dosage: 1 DRP, QD ( (01 DROP IN THE LEFT EYES/PER NIGHT) 3 OR 4 YEARS AGO
     Route: 047
  4. LATANOPROST\TIMOLOL MALEATE [Concomitant]
     Active Substance: LATANOPROST\TIMOLOL MALEATE
     Indication: Open angle glaucoma
     Dosage: 1 DRP, QD
     Route: 065
     Dates: start: 2020, end: 2020
  5. RINOSORO [Concomitant]
     Indication: Prophylaxis
     Dosage: UNK (01 SNEEZE IN EACH NOSTRIL WHEN NEEDED)
     Route: 045
     Dates: start: 202009
  6. SODIUM CHLORIDE [Concomitant]
     Active Substance: SODIUM CHLORIDE
     Indication: Prophylaxis
     Dosage: UNK (01 SNEEZE IN EACH NOSTRIL WHEN NEEDED)
     Route: 045
     Dates: start: 202009

REACTIONS (4)
  - Glaucoma [Recovered/Resolved]
  - Spinal disorder [Not Recovered/Not Resolved]
  - Headache [Not Recovered/Not Resolved]
  - Dizziness [Not Recovered/Not Resolved]

NARRATIVE: CASE EVENT DATE: 20200801
